FAERS Safety Report 20764294 (Version 1)
Quarter: 2022Q2

REPORT INFORMATION
  Report Type: Spontaneous
  Country: US (occurrence: US)
  Receive Date: 20220428
  Receipt Date: 20220428
  Transmission Date: 20220721
  Serious: No
  Sender: FDA-Public Use
  Company Number: US-GLAUKOS-AVE-2021-0167-AE

PATIENT

DRUGS (3)
  1. PHOTREXA VISCOUS [Suspect]
     Active Substance: RIBOFLAVIN 5^-PHOSPHATE SODIUM
     Indication: Keratoconus
     Route: 047
     Dates: start: 20210604, end: 20210604
  2. DEVICE [Suspect]
     Active Substance: DEVICE
     Indication: Keratoconus
     Route: 047
     Dates: start: 20210604, end: 20210604
  3. BROMFENAC\MOXIFLOXACIN\PREDNISOLONE ACETATE [Suspect]
     Active Substance: BROMFENAC\MOXIFLOXACIN\PREDNISOLONE ACETATE
     Indication: Product used for unknown indication
     Dosage: COMBO DROP
     Route: 047

REACTIONS (2)
  - Corneal epithelium defect [Recovered/Resolved]
  - Corneal disorder [Recovered/Resolved]

NARRATIVE: CASE EVENT DATE: 20210609
